FAERS Safety Report 11129506 (Version 1)
Quarter: 2015Q2

REPORT INFORMATION
  Report Type: Spontaneous
  Country: RU (occurrence: RU)
  Receive Date: 20150521
  Receipt Date: 20150521
  Transmission Date: 20150821
  Serious: Yes (Death)
  Sender: FDA-Public Use
  Company Number: RU-TEVA-561173ISR

PATIENT
  Age: 15 Year
  Sex: Female

DRUGS (2)
  1. SALBUTAMOL-TEVA [Suspect]
     Active Substance: ALBUTEROL
  2. VENTOLIN [Suspect]
     Active Substance: ALBUTEROL SULFATE

REACTIONS (2)
  - Drug ineffective [Fatal]
  - Asthma [Fatal]
